FAERS Safety Report 9797212 (Version 1)
Quarter: 2014Q1

REPORT INFORMATION
  Report Type: Report from Study
  Country: US (occurrence: US)
  Receive Date: 20140106
  Receipt Date: 20140106
  Transmission Date: 20141002
  Serious: Yes (Other)
  Sender: FDA-Public Use
  Company Number: US-ROCHE-1328111

PATIENT
  Age: 51 Year
  Sex: Male
  Weight: 97.61 kg

DRUGS (3)
  1. AVASTIN [Suspect]
     Indication: RECTAL CANCER
     Route: 065
  2. XELODA [Suspect]
     Indication: RECTAL CANCER
     Dosage: 7 DAYS ON 7 DAYS OFF
     Route: 048
  3. OXALIPLATIN [Concomitant]
     Indication: RECTAL CANCER
     Route: 065

REACTIONS (1)
  - Wound dehiscence [Not Recovered/Not Resolved]
